FAERS Safety Report 21473007 (Version 1)
Quarter: 2022Q4

REPORT INFORMATION
  Report Type: Other
  Country: US (occurrence: US)
  Receive Date: 20221018
  Receipt Date: 20221018
  Transmission Date: 20230113
  Serious: Yes (Hospitalization)
  Sender: FDA-Public Use
  Company Number: US-C B Fleet Co Inc-202209-US-003055

PATIENT
  Age: 49 Year
  Sex: Male

DRUGS (4)
  1. ASPIRIN [Suspect]
     Active Substance: ASPIRIN
     Indication: Drug abuse
     Dosage: DOSE UNKNOWN
  2. LITHIUM CARBONATE [Concomitant]
     Active Substance: LITHIUM CARBONATE
     Dosage: TID
  3. HALDOL [Concomitant]
     Active Substance: HALOPERIDOL
     Dosage: BID
  4. BENZTROPINE [Concomitant]
     Active Substance: BENZTROPINE
     Dosage: QD

REACTIONS (3)
  - Toxicity to various agents [Recovered/Resolved]
  - Drug abuse [None]
  - Intentional overdose [None]
